FAERS Safety Report 10273793 (Version 1)
Quarter: 2014Q3

REPORT INFORMATION
  Report Type: Spontaneous
  Country: US (occurrence: US)
  Receive Date: 20140702
  Receipt Date: 20140702
  Transmission Date: 20150326
  Serious: Yes (Other)
  Sender: FDA-Public Use
  Company Number: US-GLAXOSMITHKLINE-A1078765A

PATIENT
  Age: 9 Year
  Sex: Female

DRUGS (1)
  1. FLOVENT [Suspect]
     Active Substance: FLUTICASONE PROPIONATE
     Indication: ASTHMA
     Route: 065

REACTIONS (5)
  - Anaphylactic reaction [Unknown]
  - Swelling [Unknown]
  - Cough [Unknown]
  - Dermatitis allergic [Unknown]
  - Paraesthesia [Unknown]
